FAERS Safety Report 4494834-5 (Version None)
Quarter: 2004Q4

REPORT INFORMATION
  Report Type: 
  Country: None (occurrence: None)
  Receive Date: 20041103
  Receipt Date: 20041019
  Transmission Date: 20050328
  Serious: Yes (Hospitalization)
  Sender: FDA-Public Use
  Company Number: 2004-0007582

PATIENT
  Age: 56 Year
  Sex: Male

DRUGS (6)
  1. VIREAD [Suspect]
     Indication: HIV INFECTION
     Dosage: 300 MG, 1 IN 1 D, ORAL
     Route: 048
     Dates: start: 20040716, end: 20040718
  2. VOLTAREN [Suspect]
     Dosage: ORAL
     Route: 048
     Dates: start: 20040716, end: 20040718
  3. NORVIR [Suspect]
     Dosage: ORAL
     Route: 048
     Dates: start: 20040716, end: 20040718
  4. SUSTIVA [Suspect]
     Dosage: ORAL
     Route: 048
     Dates: start: 20040716, end: 20040718
  5. AGENERASE [Suspect]
     Dosage: ORAL
     Route: 048
     Dates: start: 20040716, end: 20040718
  6. KALETRA [Suspect]
     Dosage: ORAL
     Route: 048
     Dates: start: 20040716, end: 20040718

REACTIONS (13)
  - ACUTE PULMONARY OEDEMA [None]
  - BIOPSY KIDNEY ABNORMAL [None]
  - DIALYSIS [None]
  - DYSPNOEA [None]
  - HYPERKALAEMIA [None]
  - HYPERSENSITIVITY [None]
  - NEPHROPATHY [None]
  - POLYURIA [None]
  - PROTEINURIA [None]
  - RASH [None]
  - RENAL FAILURE ACUTE [None]
  - RENAL TUBULAR NECROSIS [None]
  - VENTRICULAR DYSFUNCTION [None]
